FAERS Safety Report 24131511 (Version 1)
Quarter: 2024Q3

REPORT INFORMATION
  Report Type: Spontaneous
  Country: US (occurrence: None)
  Receive Date: 20240723
  Receipt Date: 20240723
  Transmission Date: 20241017
  Serious: Yes (Other)
  Sender: Public
  Company Number: None

PATIENT
  Age: 37 Year
  Sex: Female
  Weight: 180.45 kg

DRUGS (1)
  1. ZEPBOUND [Suspect]
     Active Substance: TIRZEPATIDE
     Indication: Obesity
     Dosage: OTHER FREQUENCY : WEEKLY;?
     Route: 058
     Dates: start: 20240312, end: 20240604

REACTIONS (4)
  - Depression [None]
  - Anxiety [None]
  - Agitation [None]
  - Feeling abnormal [None]

NARRATIVE: CASE EVENT DATE: 20240412
